FAERS Safety Report 8437156-X (Version None)
Quarter: 2012Q2

REPORT INFORMATION
  Report Type: 
  Country: None (occurrence: None)
  Receive Date: 20120614
  Receipt Date: 20120417
  Transmission Date: 20120825
  Serious: No
  Sender: FDA-Public Use
  Company Number: US-AMGEN-USASP2012019214

PATIENT
  Age: 77 Year
  Sex: Female
  Weight: 60.317 kg

DRUGS (15)
  1. OMEPRAZOLE [Concomitant]
  2. CALCIUM [Concomitant]
     Dosage: 3 MG, QD
  3. B6 [Concomitant]
     Dosage: 1 MG, QD
  4. GLUCOSAMINE + MSM [Concomitant]
     Dosage: 2 MG, QD
  5. CRANBERRY [Concomitant]
     Dosage: UNK UNK, QD
     Route: 048
  6. FISH OIL [Concomitant]
     Dosage: 1 MG, QD
  7. NITROFURANTOIN [Concomitant]
     Dosage: 50 MG, UNK
  8. COLACE [Concomitant]
     Dosage: UNK UNK, QD
  9. CINNAMON [Concomitant]
     Dosage: 2 MG, QD
     Route: 048
  10. BONIVA [Concomitant]
     Dosage: UNK
  11. PROLIA [Suspect]
     Indication: OSTEOPOROSIS POSTMENOPAUSAL
     Dosage: 60 MG, Q6MO
     Dates: start: 20110825
  12. LEUCOVORIN CALCIUM [Concomitant]
  13. MULTI-VITAMINS [Concomitant]
     Dosage: UNK UNK, QD
  14. VITAMIN D [Concomitant]
     Dosage: 6000 IU, QD
  15. LIPITOR [Concomitant]
     Dosage: 1 MG, QD

REACTIONS (6)
  - BONE PAIN [None]
  - BACK PAIN [None]
  - PAIN IN EXTREMITY [None]
  - DIARRHOEA [None]
  - MUSCULAR WEAKNESS [None]
  - URINARY TRACT INFECTION [None]
